FAERS Safety Report 7428812-0 (Version None)
Quarter: 2011Q2

REPORT INFORMATION
  Report Type: 
  Country: None (occurrence: None)
  Receive Date: 20110413
  Receipt Date: 20110331
  Transmission Date: 20111010
  Serious: Yes (Other)
  Sender: FDA-Public Use
  Company Number: 029795

PATIENT
  Sex: Female
  Weight: 46 kg

DRUGS (9)
  1. VANCOMYCIN HYDROCHLORIDE [Concomitant]
  2. MAINTATE [Concomitant]
  3. PANTOSIN [Concomitant]
  4. KEPPRA [Suspect]
     Indication: EPILEPSY
     Dosage: 500 MG BID
     Dates: start: 20110317, end: 20110319
  5. DEPAKENE [Suspect]
     Dosage: 1600 MG ORAL
     Route: 048
     Dates: start: 20101222
  6. MIYA-BM [Concomitant]
  7. FAMOTIDINE [Concomitant]
  8. DIGOSIN [Concomitant]
  9. LAMICTAL [Suspect]
     Dosage: 150 MG ORAL
     Route: 048
     Dates: start: 20101225

REACTIONS (8)
  - BLOOD GLUCOSE INCREASED [None]
  - BLOOD POTASSIUM DECREASED [None]
  - BLOOD SODIUM INCREASED [None]
  - BLOOD ALKALINE PHOSPHATASE INCREASED [None]
  - BLOOD LACTATE DEHYDROGENASE INCREASED [None]
  - HAEMOGLOBIN DECREASED [None]
  - ASPARTATE AMINOTRANSFERASE INCREASED [None]
  - DRUG HYPERSENSITIVITY [None]
